FAERS Safety Report 14146933 (Version 1)
Quarter: 2017Q4

REPORT INFORMATION
  Report Type: Not Available
  Country: None (occurrence: US)
  Receive Date: 20171031
  Receipt Date: 20171031
  Transmission Date: 20180321
  Serious: No
  Sender: FDA-Public Use
  Company Number: US-AKORN-60873

PATIENT
  Sex: Female

DRUGS (1)
  1. HYDROCODONE BITRATE AND HOMATROPINE METHYLBROMIDE SYRUP [Suspect]
     Active Substance: HOMATROPINE METHYLBROMIDE\HYDROCODONE BITARTRATE

REACTIONS (1)
  - Drug ineffective [Unknown]
